FAERS Safety Report 16155467 (Version 1)
Quarter: 2019Q2

REPORT INFORMATION
  Report Type: Spontaneous
  Country: US (occurrence: US)
  Receive Date: 20190404
  Receipt Date: 20190404
  Transmission Date: 20190711
  Serious: Yes (Hospitalization)
  Sender: FDA-Public Use
  Company Number: US-BEH-2019100995

PATIENT
  Sex: Male

DRUGS (1)
  1. IDELVION [Suspect]
     Active Substance: COAGULATION FACTOR IX RECOMBINANT HUMAN
     Indication: FACTOR VIII DEFICIENCY
     Dosage: 3000 IU, UNK
     Route: 042
     Dates: start: 20140815

REACTIONS (2)
  - Tooth socket haemorrhage [Unknown]
  - Tooth extraction [Unknown]
